FAERS Safety Report 9658827 (Version 2)
Quarter: 2013Q4

REPORT INFORMATION
  Report Type: Spontaneous
  Country: US (occurrence: US)
  Receive Date: 20131030
  Receipt Date: 20131030
  Transmission Date: 20140711
  Serious: No
  Sender: FDA-Public Use
  Company Number: US-PURDUE-USA-2010-0054177

PATIENT
  Age: 53 Year
  Sex: Female
  Weight: 61.68 kg

DRUGS (3)
  1. OXYCONTIN (NDA 22-272) [Suspect]
     Indication: BACK PAIN
     Dosage: 80 MG, TID
     Route: 048
  2. OXYCONTIN (NDA 22-272) [Suspect]
     Indication: NECK PAIN
  3. OXYCODONE HYDROCHLORIDE (SIMILAR TO NDA 22-272) [Concomitant]
     Indication: PRODUCT USED FOR UNKNOWN INDICATION
     Dosage: 10 MG, QID

REACTIONS (7)
  - Skin odour abnormal [Not Recovered/Not Resolved]
  - Pain [Not Recovered/Not Resolved]
  - Hot flush [Not Recovered/Not Resolved]
  - Drug ineffective [Unknown]
  - Inadequate analgesia [Not Recovered/Not Resolved]
  - Drug effect decreased [Unknown]
  - Activities of daily living impaired [Unknown]
